FAERS Safety Report 20846485 (Version 2)
Quarter: 2022Q2

REPORT INFORMATION
  Report Type: Report from Study
  Country: US (occurrence: US)
  Receive Date: 20220518
  Receipt Date: 20220617
  Transmission Date: 20220721
  Serious: Yes (Death, Other)
  Sender: FDA-Public Use
  Company Number: US-ACADIA PHARMACEUTICALS INC.-ACA-2022-PIM-001661

PATIENT
  Sex: Female

DRUGS (6)
  1. NUPLAZID [Suspect]
     Active Substance: PIMAVANSERIN TARTRATE
     Indication: Parkinson^s disease
     Dosage: 34 MILLIGRAM, QD
     Route: 048
     Dates: start: 20191014
  2. EXELON [Concomitant]
     Active Substance: RIVASTIGMINE TARTRATE
     Dosage: 4.6 MG
     Dates: start: 201904
  3. NAMENDA [Concomitant]
     Active Substance: MEMANTINE HYDROCHLORIDE
     Dosage: 10 MILLIGRAM, BID
     Dates: start: 201904
  4. MIDODRINE [Concomitant]
     Active Substance: MIDODRINE
     Dosage: 5 MILLIGRAM
     Dates: start: 201904
  5. SINEMET [Concomitant]
     Active Substance: CARBIDOPA\LEVODOPA
     Dosage: 25/100
     Dates: start: 201808
  6. LEXAPRO [Concomitant]
     Active Substance: ESCITALOPRAM OXALATE
     Dosage: UNK
     Dates: start: 201904

REACTIONS (3)
  - Amyloidosis [Recovered/Resolved]
  - Parkinson^s disease [Recovered/Resolved]
  - Dementia [Recovered/Resolved]
